FAERS Safety Report 5279387-6 (Version None)
Quarter: 2007Q1

REPORT INFORMATION
  Report Type: 
  Country: None (occurrence: None)
  Receive Date: 20070322
  Receipt Date: 20070307
  Transmission Date: 20070707
  Serious: Yes (Other)
  Sender: FDA-Public Use
  Company Number: ST-2007-009539

PATIENT
  Age: 77 Year
  Sex: Female

DRUGS (3)
  1. OLMETEC [Suspect]
     Indication: HYPERTENSION
     Dates: start: 20040701, end: 20070109
  2. LIVARO [Suspect]
     Indication: HYPERLIPIDAEMIA
     Dosage: 1 MG QD PO
     Route: 048
     Dates: start: 20050501, end: 20070109
  3. ASPIRIN [Suspect]
     Dosage: 100 MG QD PO
     Route: 048
     Dates: start: 20040701, end: 20070109

REACTIONS (3)
  - ERYTHEMA [None]
  - PEMPHIGUS [None]
  - PRURITUS [None]
